FAERS Safety Report 4325913-0 (Version None)
Quarter: 2004Q1

REPORT INFORMATION
  Report Type: 
  Country: None (occurrence: None)
  Receive Date: 20040324
  Receipt Date: 20040304
  Transmission Date: 20041129
  Serious: Yes (Other)
  Sender: FDA-Public Use
  Company Number: JP_030400748

PATIENT
  Age: 55 Year
  Sex: Male
  Weight: 54 kg

DRUGS (7)
  1. GEMCITABINE HYDROCHLORIDE-IV (GEMCITABINE) [Suspect]
     Indication: NON-SMALL CELL LUNG CANCER
     Dosage: 800 MG/M2/OTHER
     Route: 050
     Dates: start: 20020214, end: 20020314
  2. VINORELBINE TARTRATE [Concomitant]
  3. ELCITONIN (ELCATONIN) [Concomitant]
  4. STEIROCALL [Concomitant]
  5. KYTRIL [Concomitant]
  6. PRIMPERAN TAB [Concomitant]
  7. PREDNISOLONE [Concomitant]

REACTIONS (1)
  - PLATELET COUNT DECREASED [None]
